FAERS Safety Report 16695821 (Version 1)
Quarter: 2019Q3

REPORT INFORMATION
  Report Type: Report from Study
  Country: None (occurrence: RO)
  Receive Date: 20190813
  Receipt Date: 20190813
  Transmission Date: 20191004
  Serious: Yes (Hospitalization, Other)
  Sender: FDA-Public Use
  Company Number: RO-ABBVIE-19K-135-2884843-00

PATIENT
  Age: 65 Year
  Sex: Male

DRUGS (2)
  1. HUMIRA [Suspect]
     Active Substance: ADALIMUMAB
     Indication: COLITIS ULCERATIVE
     Route: 058
     Dates: start: 20130408, end: 20190624
  2. ESSENTIALE FORTE N [Concomitant]
     Indication: HEPATOBILLIARY DISORDER PROPHYLAXIS
     Route: 048
     Dates: start: 201907

REACTIONS (7)
  - Tuberculosis [Not Recovered/Not Resolved]
  - Pulmonary oedema [Not Recovered/Not Resolved]
  - Hepatic cyst [Not Recovered/Not Resolved]
  - Bronchoscopy [Not Recovered/Not Resolved]
  - Hepatic neoplasm [Not Recovered/Not Resolved]
  - Biliary cyst [Not Recovered/Not Resolved]
  - Pericarditis [Not Recovered/Not Resolved]

NARRATIVE: CASE EVENT DATE: 2015
